FAERS Safety Report 4908137-5 (Version None)
Quarter: 2006Q1

REPORT INFORMATION
  Report Type: 
  Country: None (occurrence: None)
  Receive Date: 20060210
  Receipt Date: 20060201
  Transmission Date: 20060701
  Serious: Yes (Hospitalization)
  Sender: FDA-Public Use
  Company Number: US-JNJFOC-20060200428

PATIENT
  Sex: Female
  Weight: 76.2 kg

DRUGS (6)
  1. REMICADE [Suspect]
     Indication: RHEUMATOID ARTHRITIS
     Route: 042
  2. SINGULAIR [Concomitant]
     Indication: ASTHMA
  3. METHOTREXATE [Concomitant]
     Indication: RHEUMATOID ARTHRITIS
     Dosage: 8-12 MG WEEKLY
  4. LODINE [Concomitant]
     Indication: RHEUMATOID ARTHRITIS
  5. EFFEXOR [Concomitant]
     Indication: DEPRESSION
  6. AZULFIDINE [Concomitant]
     Indication: RHEUMATOID ARTHRITIS

REACTIONS (4)
  - CARDIAC VALVE DISEASE [None]
  - CORONARY ARTERY OCCLUSION [None]
  - HEART RATE IRREGULAR [None]
  - MYOCARDIAL INFARCTION [None]
